FAERS Safety Report 4402807-3 (Version None)
Quarter: 2004Q3

REPORT INFORMATION
  Report Type: 
  Country: None (occurrence: None)
  Receive Date: 20040719
  Receipt Date: 20040713
  Transmission Date: 20050211
  Serious: Yes (Hospitalization)
  Sender: FDA-Public Use
  Company Number: 2004UW10135

PATIENT
  Age: 71 Year
  Sex: Female
  Weight: 54.8852 kg

DRUGS (4)
  1. IRESSA [Suspect]
     Indication: NON-SMALL CELL LUNG CANCER
     Dosage: 250 MG DAILY PO
     Route: 048
     Dates: start: 20031223, end: 20040508
  2. ADALAT [Concomitant]
  3. PREDNISONE [Concomitant]
  4. ZYPREXA [Concomitant]

REACTIONS (11)
  - ASTHENIA [None]
  - BRAIN NATRIURETIC PEPTIDE INCREASED [None]
  - CARDIAC FAILURE CONGESTIVE [None]
  - DERMATITIS EXFOLIATIVE [None]
  - DIARRHOEA [None]
  - DYSPNOEA [None]
  - PAIN IN EXTREMITY [None]
  - SKIN ULCER [None]
  - VOMITING [None]
  - WEIGHT DECREASED [None]
  - WHITE BLOOD CELL COUNT INCREASED [None]
